FAERS Safety Report 11112558 (Version 3)
Quarter: 2015Q4

REPORT INFORMATION
  Report Type: Report from Study
  Country: US (occurrence: US)
  Receive Date: 20150514
  Receipt Date: 20151211
  Transmission Date: 20160304
  Serious: Yes (Other)
  Sender: FDA-Public Use
  Company Number: US-ROCHE-1366960

PATIENT
  Age: 28 Year
  Sex: Female
  Weight: 96.7 kg

DRUGS (4)
  1. OMALIZUMAB [Suspect]
     Active Substance: OMALIZUMAB
     Indication: RHINITIS ALLERGIC
     Dosage: MOST RECENT THERAPY WITH OMALIZUMAB 27/FEB/2014.
     Route: 065
     Dates: start: 20140220
  2. ZYRTEC [Concomitant]
     Active Substance: CETIRIZINE HYDROCHLORIDE
     Indication: HYPERSENSITIVITY
  3. MOTRIN [Concomitant]
     Active Substance: IBUPROFEN
  4. OMALIZUMAB [Suspect]
     Active Substance: OMALIZUMAB
     Indication: ASTHMA
     Route: 065
     Dates: start: 20131227

REACTIONS (3)
  - Dyspepsia [Unknown]
  - VIIth nerve paralysis [Recovered/Resolved]
  - Maternal exposure during pregnancy [Unknown]

NARRATIVE: CASE EVENT DATE: 20141104
